FAERS Safety Report 7682419-9 (Version None)
Quarter: 2011Q3

REPORT INFORMATION
  Report Type: 
  Country: None (occurrence: None)
  Receive Date: 20110808
  Receipt Date: 20110726
  Transmission Date: 20111222
  Serious: Yes (Other)
  Sender: FDA-Public Use
  Company Number: DSA_47268_2011

PATIENT
  Sex: Male

DRUGS (6)
  1. LYRICA [Suspect]
     Indication: PRODUCT USED FOR UNKNOWN INDICATION
     Dosage: 75 MG, QD,
     Dates: start: 20110720
  2. IMOVANE (IMOVANE - ZOPICLONE) (NOT SPECIFIED) [Suspect]
     Indication: INSOMNIA
     Dosage: DF
  3. BUPROPION HYDROCHLORIDE [Suspect]
     Indication: DEPRESSION
     Dosage: 150, 300 MG
     Dates: end: 20110701
  4. BUPROPION HYDROCHLORIDE [Suspect]
     Indication: DEPRESSION
     Dosage: 150, 300 MG
     Dates: start: 20110701
  5. WELLBUTRIN [Suspect]
     Indication: DEPRESSION
     Dosage: 300 MG
  6. CONCERTA [Concomitant]

REACTIONS (9)
  - CONFUSIONAL STATE [None]
  - HALLUCINATION, AUDITORY [None]
  - DECREASED APPETITE [None]
  - BALANCE DISORDER [None]
  - APHASIA [None]
  - NIGHTMARE [None]
  - FEELING DRUNK [None]
  - STRABISMUS [None]
  - DYSARTHRIA [None]
